FAERS Safety Report 15469336 (Version 2)
Quarter: 2018Q4

REPORT INFORMATION
  Report Type: Spontaneous
  Country: FR (occurrence: FR)
  Receive Date: 20181005
  Receipt Date: 20181010
  Transmission Date: 20190205
  Serious: No
  Sender: FDA-Public Use
  Company Number: FR-009507513-1810FRA001777

PATIENT
  Sex: Female

DRUGS (2)
  1. EMEND [Suspect]
     Active Substance: APREPITANT
     Route: 048
  2. EMEND [Suspect]
     Active Substance: APREPITANT
     Route: 048

REACTIONS (2)
  - Oropharyngeal surgery [Unknown]
  - Dysphagia [Unknown]
